FAERS Safety Report 8035617-9 (Version None)
Quarter: 2012Q1

REPORT INFORMATION
  Report Type: 
  Country: None (occurrence: None)
  Receive Date: 20120111
  Receipt Date: 20120109
  Transmission Date: 20120608
  Serious: Yes (Other)
  Sender: FDA-Public Use
  Company Number: US-BAYER-2012-002821

PATIENT
  Age: 28 Year
  Sex: Female

DRUGS (1)
  1. BEYAZ [Suspect]
     Indication: CONTRACEPTION
     Dosage: UNK
     Route: 048
     Dates: start: 20100101

REACTIONS (4)
  - DYSPEPSIA [None]
  - THROAT TIGHTNESS [None]
  - HYPOPHAGIA [None]
  - DYSPHAGIA [None]
